FAERS Safety Report 9296630 (Version 3)
Quarter: 2014Q1

REPORT INFORMATION
  Report Type: Spontaneous
  Country: US (occurrence: US)
  Receive Date: 20130517
  Receipt Date: 20140127
  Transmission Date: 20141002
  Serious: Yes (Other)
  Sender: FDA-Public Use
  Company Number: US-UCBSA-086198

PATIENT
  Sex: Male
  Weight: 58.9 kg

DRUGS (2)
  1. VIMPAT [Suspect]
     Indication: CONVULSION
     Dosage: 150 MG
     Dates: start: 20110216
  2. VIMPAT [Suspect]
     Indication: CONVULSION

REACTIONS (5)
  - Severe mental retardation [Unknown]
  - Abnormal behaviour [Unknown]
  - Convulsion [Unknown]
  - Dysphagia [Unknown]
  - Complex partial seizures [Unknown]
